FAERS Safety Report 11500147 (Version 3)
Quarter: 2015Q3

REPORT INFORMATION
  Report Type: Report from Study
  Country: KR (occurrence: KR)
  Receive Date: 20150914
  Receipt Date: 20150924
  Transmission Date: 20151125
  Serious: Yes (Death)
  Sender: FDA-Public Use
  Company Number: KR-OTSUKA-2015_009418

PATIENT

DRUGS (11)
  1. COMBIFLEX   PERI [Concomitant]
     Indication: HYPONATRAEMIA
     Dosage: 1 OTHER,DAILY
     Route: 042
     Dates: start: 20150802, end: 20150806
  2. SAMSCA [Suspect]
     Active Substance: TOLVAPTAN
     Indication: HYPERVOLAEMIA
  3. CORDARONE [Concomitant]
     Active Substance: AMIODARONE HYDROCHLORIDE
     Indication: HYPERVOLAEMIA
  4. ITOMED [Concomitant]
     Indication: HYPERVOLAEMIA
  5. COMBIFLEX   PERI [Concomitant]
     Indication: HYPERVOLAEMIA
  6. LANSTON LFDT [Concomitant]
     Active Substance: LANSOPRAZOLE
     Indication: PROPHYLAXIS
     Dosage: 15 MG, DAILY
     Route: 048
     Dates: start: 20150804, end: 20150806
  7. CORDARONE [Concomitant]
     Active Substance: AMIODARONE HYDROCHLORIDE
     Indication: HYPONATRAEMIA
     Dosage: 100 MG,DAILY
     Route: 048
     Dates: start: 20150804, end: 20150805
  8. PREGREL [Concomitant]
     Indication: HYPERVOLAEMIA
  9. ITOMED [Concomitant]
     Indication: HYPONATRAEMIA
     Dosage: 100 G,DAILY
     Route: 048
     Dates: start: 20150804, end: 20150806
  10. PREGREL [Concomitant]
     Indication: HYPONATRAEMIA
     Dosage: 75 MG,DAILY
     Route: 048
     Dates: start: 20150802, end: 20150805
  11. SAMSCA [Suspect]
     Active Substance: TOLVAPTAN
     Indication: HYPONATRAEMIA
     Dosage: 7.5 MG, QD
     Route: 048
     Dates: start: 20150805, end: 20150806

REACTIONS (1)
  - Cardiac failure [Fatal]

NARRATIVE: CASE EVENT DATE: 20150805
